FAERS Safety Report 20905366 (Version 1)
Quarter: 2022Q2

REPORT INFORMATION
  Report Type: Report from Study
  Country: IT (occurrence: IT)
  Receive Date: 20220602
  Receipt Date: 20220602
  Transmission Date: 20220721
  Serious: Yes (Other)
  Sender: FDA-Public Use
  Company Number: IT-NOVARTISPH-NVSC2022IT044478

PATIENT
  Age: 58 Year
  Sex: Male

DRUGS (2)
  1. COSENTYX [Suspect]
     Active Substance: SECUKINUMAB
     Indication: Product used for unknown indication
     Dosage: 300 MG, UNKNOWN
     Route: 065
     Dates: start: 20211002
  2. COSENTYX [Suspect]
     Active Substance: SECUKINUMAB
     Dosage: 300 MG, QMO (28 DAYS)
     Route: 065

REACTIONS (7)
  - Psoriatic arthropathy [Unknown]
  - Arthritis [Unknown]
  - Limb injury [Unknown]
  - Pain in extremity [Unknown]
  - Arthralgia [Unknown]
  - Prostatic specific antigen increased [Unknown]
  - Fatigue [Unknown]

NARRATIVE: CASE EVENT DATE: 20220223
